FAERS Safety Report 19210932 (Version 5)
Quarter: 2021Q2

REPORT INFORMATION
  Report Type: Spontaneous
  Country: US (occurrence: US)
  Receive Date: 20210501
  Receipt Date: 20210621
  Transmission Date: 20210717
  Serious: Yes (Death, Hospitalization, Other)
  Sender: FDA-Public Use
  Company Number: US-UNITED THERAPEUTICS-UNT-2021-007440

PATIENT
  Age: 41 Year
  Sex: Female
  Weight: 61.22 kg

DRUGS (7)
  1. REMODULIN [Suspect]
     Active Substance: TREPROSTINIL
     Dosage: 0.045 ?G/KG, CONTINUING
     Route: 041
     Dates: start: 202104
  2. REMODULIN [Suspect]
     Active Substance: TREPROSTINIL
     Indication: PULMONARY ARTERIAL HYPERTENSION
     Dosage: UNK, CONTINUING
     Route: 041
     Dates: start: 20190605
  3. REMODULIN [Suspect]
     Active Substance: TREPROSTINIL
     Dosage: 0.0486 ?G/KG, CONTINUING
     Route: 041
  4. REMODULIN [Suspect]
     Active Substance: TREPROSTINIL
     Dosage: UNK, CONTINUING (INCREASED PUMP RATE 48 ML/24 HR)
     Route: 041
     Dates: start: 202104
  5. REMODULIN [Suspect]
     Active Substance: TREPROSTINIL
     Dosage: 0.046 ?G/KG, CONTINUING
     Route: 041
     Dates: start: 202104
  6. TADALAFIL. [Concomitant]
     Active Substance: TADALAFIL
     Indication: PRODUCT USED FOR UNKNOWN INDICATION
     Dosage: UNK
     Route: 065
  7. LETAIRIS [Concomitant]
     Active Substance: AMBRISENTAN
     Indication: PRODUCT USED FOR UNKNOWN INDICATION
     Dosage: UNK
     Route: 065

REACTIONS (14)
  - Dizziness [Unknown]
  - Uterine haemorrhage [Unknown]
  - Uterine leiomyoma [Unknown]
  - Thrombocytopenia [Fatal]
  - Heavy menstrual bleeding [Unknown]
  - Bacteraemia [Unknown]
  - Pulmonary hypertensive crisis [Fatal]
  - Pallor [Unknown]
  - Pulmonary arterial pressure abnormal [Unknown]
  - Pulmonary arterial hypertension [Fatal]
  - Hypotension [Unknown]
  - Vascular device infection [Unknown]
  - Feeling cold [Unknown]
  - Palpitations [Unknown]

NARRATIVE: CASE EVENT DATE: 202104
